FAERS Safety Report 7094376-7 (Version None)
Quarter: 2010Q4

REPORT INFORMATION
  Report Type: 
  Country: None (occurrence: None)
  Receive Date: 20101110
  Receipt Date: 20101101
  Transmission Date: 20110411
  Serious: Yes (Hospitalization)
  Sender: FDA-Public Use
  Company Number: US-ASTRAZENECA-2008UW17539

PATIENT
  Age: 728 Month
  Sex: Female

DRUGS (2)
  1. ARIMIDEX [Suspect]
     Indication: BREAST CANCER
     Route: 048
     Dates: start: 20080719, end: 20100731
  2. ARIMIDEX [Suspect]
     Dosage: GENERIC 1 MG DAILY
     Route: 048
     Dates: start: 20100801

REACTIONS (2)
  - BREAST MASS [None]
  - HEADACHE [None]
